FAERS Safety Report 7718096-8 (Version None)
Quarter: 2011Q3

REPORT INFORMATION
  Report Type: 
  Country: None (occurrence: None)
  Receive Date: 20110830
  Receipt Date: 20110822
  Transmission Date: 20111222
  Serious: Yes (Other)
  Sender: FDA-Public Use
  Company Number: US-JNJFOC-20110709447

PATIENT
  Sex: Female
  Weight: 72.58 kg

DRUGS (4)
  1. PLAVIX [Concomitant]
     Indication: CEREBROVASCULAR ACCIDENT
     Route: 048
  2. NAMENDA [Concomitant]
     Indication: MEMORY IMPAIRMENT
     Route: 048
     Dates: start: 19950101
  3. METOPROLOL TARTRATE [Concomitant]
     Indication: HYPERTENSION
     Route: 048
  4. REMICADE [Suspect]
     Indication: RHEUMATOID ARTHRITIS
     Route: 042
     Dates: start: 20090801, end: 20100101

REACTIONS (4)
  - THYROID DISORDER [None]
  - ABDOMINAL DISTENSION [None]
  - SWELLING [None]
  - ADVERSE EVENT [None]
